FAERS Safety Report 13505056 (Version 7)
Quarter: 2017Q3

REPORT INFORMATION
  Report Type: Report from Study
  Country: JP (occurrence: JP)
  Receive Date: 20170502
  Receipt Date: 20170906
  Transmission Date: 20171127
  Serious: Yes (Death, Hospitalization, Other)
  Sender: FDA-Public Use
  Company Number: PHJP2017JP001502

PATIENT
  Age: 84 Year
  Sex: Male

DRUGS (26)
  1. VELCADE [Suspect]
     Active Substance: BORTEZOMIB
     Dosage: 1 MG/M2, QW
     Route: 058
     Dates: start: 20160224, end: 20160327
  2. VELCADE [Suspect]
     Active Substance: BORTEZOMIB
     Dosage: 0.88 MG/M2, QW
     Route: 058
     Dates: start: 20160718, end: 20160807
  3. ADALAT [Concomitant]
     Active Substance: NIFEDIPINE
     Indication: HYPERTENSION
     Dosage: 20 MG, QD
     Route: 048
  4. FARYDAK [Suspect]
     Active Substance: PANOBINOSTAT
     Dosage: 10 MG, QD
     Route: 048
     Dates: start: 20160224, end: 20160327
  5. LENADEX [Suspect]
     Active Substance: DEXAMETHASONE ACETATE
     Dosage: UNK
     Route: 065
     Dates: start: 20160224, end: 20160904
  6. FARYDAK [Suspect]
     Active Substance: PANOBINOSTAT
     Dosage: 10 MG, QD
     Route: 048
     Dates: start: 20160328, end: 20160424
  7. FARYDAK [Suspect]
     Active Substance: PANOBINOSTAT
     Dosage: 10 MG, QD
     Route: 048
     Dates: start: 20160718, end: 20160807
  8. FARYDAK [Suspect]
     Active Substance: PANOBINOSTAT
     Dosage: 10 MG, QD
     Route: 048
     Dates: start: 20161031, end: 20161114
  9. VELCADE [Suspect]
     Active Substance: BORTEZOMIB
     Dosage: 0.7 MG/M2, BIW
     Route: 058
     Dates: start: 20160905, end: 20161002
  10. FARYDAK [Suspect]
     Active Substance: PANOBINOSTAT
     Indication: PLASMA CELL MYELOMA
     Dosage: 20 MG, QD
     Route: 048
     Dates: start: 20160202
  11. FARYDAK [Suspect]
     Active Substance: PANOBINOSTAT
     Dosage: 10 MG, QD
     Route: 048
     Dates: start: 20160620, end: 20160717
  12. VELCADE [Suspect]
     Active Substance: BORTEZOMIB
     Dosage: 0.7 MG/M2, BIW
     Route: 058
     Dates: start: 20161003, end: 20161030
  13. LENADEX [Suspect]
     Active Substance: DEXAMETHASONE ACETATE
     Dosage: 16 MG, UNK
     Route: 065
  14. FARYDAK [Suspect]
     Active Substance: PANOBINOSTAT
     Dosage: 10 MG, QD
     Route: 048
     Dates: start: 20161003, end: 20161030
  15. VELCADE [Suspect]
     Active Substance: BORTEZOMIB
     Indication: PLASMA CELL MYELOMA
     Dosage: 1 MG/M2, QW2
     Route: 058
     Dates: start: 20160202, end: 20160223
  16. VELCADE [Suspect]
     Active Substance: BORTEZOMIB
     Dosage: 0.7 MG/M2, BIW
     Route: 058
     Dates: start: 20161031, end: 20161114
  17. XYZAL [Concomitant]
     Active Substance: LEVOCETIRIZINE DIHYDROCHLORIDE
     Indication: RASH
     Dosage: 5 MG, QD
     Route: 048
  18. FARYDAK [Suspect]
     Active Substance: PANOBINOSTAT
     Dosage: 10 MG, QD
     Route: 048
     Dates: end: 20160223
  19. FARYDAK [Suspect]
     Active Substance: PANOBINOSTAT
     Dosage: 10 MG, QD
     Route: 048
     Dates: start: 20160905, end: 20161002
  20. VELCADE [Suspect]
     Active Substance: BORTEZOMIB
     Dosage: 0.88 MG/M2, BIW
     Route: 058
     Dates: start: 20160808, end: 20160904
  21. FARYDAK [Suspect]
     Active Substance: PANOBINOSTAT
     Dosage: 10 MG, QD
     Route: 048
     Dates: start: 20160808, end: 20160904
  22. VELCADE [Suspect]
     Active Substance: BORTEZOMIB
     Dosage: 0.88 MG/M2, BIW
     Route: 058
     Dates: start: 20160620, end: 20160717
  23. LENADEX [Suspect]
     Active Substance: DEXAMETHASONE ACETATE
     Indication: PLASMA CELL MYELOMA
     Dosage: UNK
     Route: 065
     Dates: start: 20160202, end: 20161114
  24. FARYDAK [Suspect]
     Active Substance: PANOBINOSTAT
     Dosage: 10 MG, QD
     Route: 048
     Dates: start: 20160425, end: 20160522
  25. FARYDAK [Suspect]
     Active Substance: PANOBINOSTAT
     Dosage: 10 MG, QD
     Route: 048
     Dates: start: 20160523, end: 20160619
  26. VELCADE [Suspect]
     Active Substance: BORTEZOMIB
     Dosage: 1 MG/M2, BIW
     Route: 058
     Dates: start: 20160328, end: 20160619

REACTIONS (28)
  - Azotaemia [Fatal]
  - Dyspnoea [Fatal]
  - Back pain [Fatal]
  - Pneumonia aspiration [Unknown]
  - Device related infection [Recovering/Resolving]
  - Malignant neoplasm progression [Fatal]
  - Tooth abscess [Not Recovered/Not Resolved]
  - Decreased appetite [Recovered/Resolved]
  - Malaise [Recovered/Resolved]
  - Neck pain [Fatal]
  - Blood urea increased [Unknown]
  - Depressed level of consciousness [Unknown]
  - Peripheral coldness [Unknown]
  - Platelet count decreased [Not Recovered/Not Resolved]
  - Abdominal pain [Fatal]
  - Blood creatinine increased [Unknown]
  - Decreased appetite [Recovered/Resolved]
  - Somnolence [Fatal]
  - Dehydration [Not Recovered/Not Resolved]
  - Malaise [Unknown]
  - Decreased appetite [Not Recovered/Not Resolved]
  - Diarrhoea [Recovered/Resolved]
  - Plasma cell myeloma [Fatal]
  - Dysstasia [Unknown]
  - Decreased appetite [Recovered/Resolved]
  - Dehydration [Recovered/Resolved]
  - Diarrhoea [Recovering/Resolving]
  - Feeding disorder [Unknown]

NARRATIVE: CASE EVENT DATE: 20160204
